FAERS Safety Report 23528514 (Version 1)
Quarter: 2024Q1

REPORT INFORMATION
  Report Type: Spontaneous
  Country: US (occurrence: US)
  Receive Date: 20240215
  Receipt Date: 20240215
  Transmission Date: 20240410
  Serious: Yes (Hospitalization, Other)
  Sender: FDA-Public Use
  Company Number: US-Stemline Therapeutics, Inc.-2023ST001798

PATIENT
  Sex: Female

DRUGS (1)
  1. ELZONRIS [Suspect]
     Active Substance: TAGRAXOFUSP-ERZS
     Indication: Product used for unknown indication
     Dosage: CYCLE - 2 (DAY 1 TO DAY 5 OF A 21-DAY CYCLE)
     Route: 042
     Dates: start: 20230626

REACTIONS (2)
  - Capillary leak syndrome [Recovered/Resolved]
  - Oedema peripheral [Recovered/Resolved]
